FAERS Safety Report 24779250 (Version 2)
Quarter: 2025Q1

REPORT INFORMATION
  Report Type: Report from Study
  Country: US (occurrence: US)
  Receive Date: 20241226
  Receipt Date: 20250101
  Transmission Date: 20250408
  Serious: Yes (Other)
  Sender: UCB
  Company Number: US-UCBSA-2024067312

PATIENT
  Age: 10 Year
  Sex: Male

DRUGS (2)
  1. FINTEPLA [Suspect]
     Active Substance: FENFLURAMINE
     Indication: Product used for unknown indication
  2. FINTEPLA [Suspect]
     Active Substance: FENFLURAMINE
     Dosage: 17.8 MILLIGRAM, ONCE DAILY (QD)

REACTIONS (1)
  - Tricuspid valve incompetence [Not Recovered/Not Resolved]

NARRATIVE: CASE EVENT DATE: 20241218
